FAERS Safety Report 13989503 (Version 1)
Quarter: 2017Q3

REPORT INFORMATION
  Report Type: Spontaneous
  Country: US (occurrence: US)
  Receive Date: 20170920
  Receipt Date: 20170920
  Transmission Date: 20171128
  Serious: No
  Sender: FDA-Public Use
  Company Number: US-TEVA-733405ACC

PATIENT
  Sex: Male
  Weight: 113.95 kg

DRUGS (4)
  1. EPITOL [Suspect]
     Active Substance: CARBAMAZEPINE
     Indication: PANIC ATTACK
  2. EPITOL [Suspect]
     Active Substance: CARBAMAZEPINE
     Indication: ANGER
  3. EPITOL [Suspect]
     Active Substance: CARBAMAZEPINE
     Indication: BIPOLAR DISORDER
  4. EPITOL [Suspect]
     Active Substance: CARBAMAZEPINE
     Indication: PARANOIA

REACTIONS (4)
  - Product use in unapproved indication [Unknown]
  - Paranoia [Unknown]
  - Anger [Unknown]
  - Drug ineffective for unapproved indication [Unknown]
